FAERS Safety Report 25450893 (Version 1)
Quarter: 2025Q2

REPORT INFORMATION
  Report Type: Spontaneous
  Country: CN (occurrence: CN)
  Receive Date: 20250618
  Receipt Date: 20250618
  Transmission Date: 20250717
  Serious: Yes (Other)
  Sender: MYLAN
  Company Number: CN-MYLANLABS-2025M1050970

PATIENT
  Age: 41 Year
  Sex: Male

DRUGS (20)
  1. METFORMIN [Suspect]
     Active Substance: METFORMIN HYDROCHLORIDE
     Indication: Monogenic diabetes
     Dosage: 1500 MILLIGRAM, QD
  2. METFORMIN [Suspect]
     Active Substance: METFORMIN HYDROCHLORIDE
     Dosage: 1500 MILLIGRAM, QD
     Route: 048
  3. METFORMIN [Suspect]
     Active Substance: METFORMIN HYDROCHLORIDE
     Dosage: 1500 MILLIGRAM, QD
     Route: 048
  4. METFORMIN [Suspect]
     Active Substance: METFORMIN HYDROCHLORIDE
     Dosage: 1500 MILLIGRAM, QD
  5. SITAGLIPTIN [Suspect]
     Active Substance: SITAGLIPTIN
     Indication: Monogenic diabetes
  6. SITAGLIPTIN [Suspect]
     Active Substance: SITAGLIPTIN
     Route: 048
  7. SITAGLIPTIN [Suspect]
     Active Substance: SITAGLIPTIN
     Route: 048
  8. SITAGLIPTIN [Suspect]
     Active Substance: SITAGLIPTIN
  9. PIOGLITAZONE [Suspect]
     Active Substance: PIOGLITAZONE
     Indication: Monogenic diabetes
  10. PIOGLITAZONE [Suspect]
     Active Substance: PIOGLITAZONE
     Route: 048
  11. PIOGLITAZONE [Suspect]
     Active Substance: PIOGLITAZONE
     Route: 048
  12. PIOGLITAZONE [Suspect]
     Active Substance: PIOGLITAZONE
  13. ACARBOSE [Suspect]
     Active Substance: ACARBOSE
     Indication: Monogenic diabetes
     Dosage: 150 MILLIGRAM, QD
  14. ACARBOSE [Suspect]
     Active Substance: ACARBOSE
     Dosage: 150 MILLIGRAM, QD
     Route: 048
  15. ACARBOSE [Suspect]
     Active Substance: ACARBOSE
     Dosage: 150 MILLIGRAM, QD
     Route: 048
  16. ACARBOSE [Suspect]
     Active Substance: ACARBOSE
     Dosage: 150 MILLIGRAM, QD
  17. EMPAGLIFLOZIN [Suspect]
     Active Substance: EMPAGLIFLOZIN
     Indication: Monogenic diabetes
  18. EMPAGLIFLOZIN [Suspect]
     Active Substance: EMPAGLIFLOZIN
     Route: 048
  19. EMPAGLIFLOZIN [Suspect]
     Active Substance: EMPAGLIFLOZIN
     Route: 048
  20. EMPAGLIFLOZIN [Suspect]
     Active Substance: EMPAGLIFLOZIN

REACTIONS (1)
  - Drug ineffective [Unknown]
